FAERS Safety Report 8374952-1 (Version None)
Quarter: 2012Q2

REPORT INFORMATION
  Report Type: 
  Country: None (occurrence: None)
  Receive Date: 20120521
  Receipt Date: 20120514
  Transmission Date: 20120825
  Serious: Yes (Hospitalization)
  Sender: FDA-Public Use
  Company Number: ZA-PFIZER INC-2012117182

PATIENT
  Age: 48 Year
  Sex: Female
  Weight: 55.6 kg

DRUGS (9)
  1. METHOTREXATE [Concomitant]
     Indication: PSORIATIC ARTHROPATHY
     Dosage: 1 IN 1WK
     Route: 048
     Dates: start: 20101206
  2. PLASMOQUINE [Concomitant]
     Indication: PSORIATIC ARTHROPATHY
     Dosage: 200 MG, 1X/DAY
     Route: 048
     Dates: start: 20110111
  3. SULFASALAZINE [Suspect]
     Indication: PSORIATIC ARTHROPATHY
     Dosage: 1000MG DAILY
     Route: 048
     Dates: start: 20101227, end: 20120305
  4. FOLIC ACID [Concomitant]
     Indication: PSORIATIC ARTHROPATHY
     Dosage: 5 MG, 1X/DAY
     Route: 048
     Dates: start: 20101117
  5. TRAMADOL [Concomitant]
     Indication: PAIN
     Dosage: 75 MG, 1X/DAY
     Route: 048
     Dates: start: 20110111
  6. PARACETAMOL [Concomitant]
     Indication: PAIN
     Dosage: 750 MG, 1X/DAY
     Route: 048
     Dates: start: 20111101
  7. APREMILAST [Suspect]
     Indication: PSORIATIC ARTHROPATHY
     Dosage: 20 MG, 2X/DAY
     Route: 048
     Dates: start: 20111215, end: 20120305
  8. ARCOXIA [Concomitant]
     Indication: PSORIATIC ARTHROPATHY
     Dosage: 90 MG, 1X/DAY
     Route: 048
     Dates: start: 20101206
  9. VAGIFEM [Concomitant]
     Indication: POSTMENOPAUSE
     Dosage: 2 IN 1 WEEK
     Route: 067
     Dates: start: 20110501

REACTIONS (1)
  - DIARRHOEA [None]
